FAERS Safety Report 12204377 (Version 1)
Quarter: 2016Q1

REPORT INFORMATION
  Report Type: Spontaneous
  Country: CA (occurrence: CA)
  Receive Date: 20160323
  Receipt Date: 20160323
  Transmission Date: 20160526
  Serious: Yes (Other)
  Sender: FDA-Public Use
  Company Number: CA-CONCORDIA PHARMACEUTICALS INC.-CO-PL-CA-2016-135

PATIENT
  Age: 55 Year
  Sex: Female

DRUGS (5)
  1. PLAQUENIL [Suspect]
     Active Substance: HYDROXYCHLOROQUINE SULFATE
     Indication: RHEUMATOID ARTHRITIS
  2. ENBREL [Concomitant]
     Active Substance: ETANERCEPT
  3. METHOTREXATE [Concomitant]
     Active Substance: METHOTREXATE
  4. HUMIRA [Concomitant]
     Active Substance: ADALIMUMAB
  5. ORENCIA [Concomitant]
     Active Substance: ABATACEPT

REACTIONS (2)
  - Rheumatoid arthritis [None]
  - Drug ineffective [None]
